FAERS Safety Report 8832462 (Version 1)
Quarter: 2012Q4

REPORT INFORMATION
  Report Type: Spontaneous
  Country: DE (occurrence: None)
  Receive Date: 20121005
  Receipt Date: 20121005
  Transmission Date: 20130627
  Serious: Yes (Other)
  Sender: FDA-Public Use
  Company Number: AUR-APL-2012-04265

PATIENT
  Age: 37 Year
  Sex: Female

DRUGS (9)
  1. OLANZAPINE [Suspect]
     Indication: OBSESSIVE-COMPULSIVE DISORDER
     Dosage: 2.5 mg, 1 d, oral
     Route: 048
  2. VENLAFAXINE [Suspect]
     Indication: DEPRESSION
     Dosage: 75 mg, 1 d, oral
  3. VENLAFAXINE [Suspect]
     Indication: DEPRESSION
     Dosage: 350mg, 1 d, oral
     Route: 048
  4. QUILONUM [Suspect]
     Indication: OBSESSIVE-COMPULSIVE DISORDER
     Dosage: 225 mg, 1 d, oral
     Route: 048
  5. QUILONUM [Suspect]
     Indication: OBSESSIVE-COMPULSIVE DISORDER
     Dosage: 450 mg, 1 d, oral
     Route: 048
  6. QUILONUM [Suspect]
     Indication: OBSESSIVE-COMPULSIVE DISORDER
     Dosage: 675 mg, 1 d, oral
     Route: 048
  7. QUILONUM [Suspect]
     Indication: OBSESSIVE-COMPULSIVE DISORDER
     Dosage: 900 mg, 1 d, oral
     Route: 048
  8. SERTRALINE [Concomitant]
  9. FOLSAURE [Concomitant]

REACTIONS (4)
  - Maternal exposure during pregnancy [None]
  - Gastroenteritis norovirus [None]
  - Foetal death [None]
  - Placental insufficiency [None]
